FAERS Safety Report 4282837-5 (Version None)
Quarter: 2004Q1

REPORT INFORMATION
  Report Type: 
  Country: None (occurrence: None)
  Receive Date: 20040130
  Receipt Date: 20030523
  Transmission Date: 20041129
  Serious: No
  Sender: FDA-Public Use
  Company Number: US-BRISTOL-MYERS SQUIBB COMPANY-12285607

PATIENT
  Age: 36 Year
  Sex: Female
  Weight: 84 kg

DRUGS (2)
  1. SERZONE [Suspect]
     Indication: DEPRESSION
     Dosage: DOSE REPORTED AS 2-250MG TABS AT HS,AT TIME OF EVENT TOOK 1-250MG TAB HS ON 22-MAY-03
     Route: 048
  2. SERZONE [Suspect]
     Indication: MIGRAINE
     Dosage: DOSE REPORTED AS 2-250MG TABS AT HS,AT TIME OF EVENT TOOK 1-250MG TAB HS ON 22-MAY-03
     Route: 048

REACTIONS (7)
  - DIZZINESS [None]
  - FEELING HOT [None]
  - FLUSHING [None]
  - MYDRIASIS [None]
  - NAUSEA [None]
  - VERTIGO [None]
  - VOMITING [None]
